FAERS Safety Report 6683934-7 (Version None)
Quarter: 2010Q2

REPORT INFORMATION
  Report Type: 
  Country: None (occurrence: None)
  Receive Date: 20100416
  Receipt Date: 20100406
  Transmission Date: 20101027
  Serious: Yes (Other)
  Sender: FDA-Public Use
  Company Number: US-PFIZER INC-2010043623

PATIENT
  Sex: Female
  Weight: 63.492 kg

DRUGS (4)
  1. CARDURA [Suspect]
     Indication: HYPERTENSION
     Dosage: 1 MG, 1X/DAY
     Route: 048
     Dates: start: 20090401
  2. CARDIZEM [Suspect]
     Indication: HYPERTENSION
     Dosage: UNK
     Route: 048
     Dates: start: 20090401
  3. AVAPRO [Suspect]
     Dosage: UNK
  4. FENOFIBRIC ACID [Concomitant]
     Indication: BLOOD CHOLESTEROL INCREASED
     Dosage: 135 MG, 1X/DAY
     Route: 048
     Dates: start: 20100301

REACTIONS (4)
  - ANGIOEDEMA [None]
  - JOINT INJURY [None]
  - JOINT SWELLING [None]
  - OEDEMA PERIPHERAL [None]
